FAERS Safety Report 11455091 (Version 1)
Quarter: 2015Q3

REPORT INFORMATION
  Report Type: Spontaneous
  Country: TR (occurrence: TR)
  Receive Date: 20150903
  Receipt Date: 20150903
  Transmission Date: 20151125
  Serious: Yes (Hospitalization, Other)
  Sender: FDA-Public Use
  Company Number: TR-GLAXOSMITHKLINE-TR2015GSK029999

PATIENT
  Age: 32 Year
  Sex: Male

DRUGS (3)
  1. QUETIAPINE [Suspect]
     Active Substance: QUETIAPINE
     Indication: ACUTE PSYCHOSIS
     Dosage: 150 MG, TID
  2. LEVODOPA + BENSERAZIDE [Suspect]
     Active Substance: BENSERAZIDE\LEVODOPA
     Indication: PARKINSON^S DISEASE
     Dosage: UNK
  3. LEVODOPA + BENSERAZIDE [Suspect]
     Active Substance: BENSERAZIDE\LEVODOPA
     Dosage: UNK (REDUCED DOSE)

REACTIONS (10)
  - Agitation [Unknown]
  - Seizure [Unknown]
  - Muscle rigidity [Unknown]
  - Neuroleptic malignant syndrome [Unknown]
  - Tremor [Unknown]
  - Depressed level of consciousness [Unknown]
  - Confusional state [Unknown]
  - Blood creatinine increased [Recovering/Resolving]
  - Blood creatine phosphokinase increased [Unknown]
  - Muscle contractions involuntary [Unknown]
